FAERS Safety Report 25641619 (Version 1)
Quarter: 2025Q3

REPORT INFORMATION
  Report Type: Spontaneous
  Country: US (occurrence: US)
  Receive Date: 20250804
  Receipt Date: 20250804
  Transmission Date: 20251020
  Serious: Yes (Other)
  Sender: PURDUE
  Company Number: US-PURDUE-USA-2025-0319347

PATIENT
  Age: 43 Year
  Sex: Male

DRUGS (1)
  1. DEXTROAMPHETAMINE SACCHARATE, AMPHETAMINE ASPARTATE, DEXTROAMPHETAMINE [Suspect]
     Active Substance: AMPHETAMINE ASPARTATE\AMPHETAMINE SULFATE\DEXTROAMPHETAMINE SACCHARATE\DEXTROAMPHETAMINE SULFATE
     Indication: Disturbance in attention
     Dosage: 45 TO 65 MG DAILY
     Route: 048

REACTIONS (7)
  - Cardiotoxicity [Unknown]
  - Cardiac failure [Unknown]
  - Ischaemic cardiomyopathy [Unknown]
  - Cerebrovascular accident [Unknown]
  - Arteriosclerosis coronary artery [Unknown]
  - Coronary artery disease [Unknown]
  - Drug abuse [Unknown]
